FAERS Safety Report 4586571-3 (Version None)
Quarter: 2005Q1

REPORT INFORMATION
  Report Type: 
  Country: None (occurrence: None)
  Receive Date: 20050218
  Receipt Date: 20040419
  Transmission Date: 20050727
  Serious: Yes (Other)
  Sender: FDA-Public Use
  Company Number: US-BRISTOL-MYERS SQUIBB COMPANY-12564027

PATIENT
  Age: 40 Year
  Sex: Male
  Weight: 89 kg

DRUGS (6)
  1. TAXOL [Suspect]
     Indication: TESTIS CANCER
     Dosage: 110 MG/M2 ON DAYS 1, 8, 15 INITIAL DOSE: 09-MAR-2004
     Route: 042
     Dates: start: 20040316, end: 20040316
  2. GEMCITABINE [Concomitant]
     Indication: TESTIS CANCER
     Dosage: 1000 MG/M2 ON DAYS 1, 8, 15 INITIAL DOSE: 09-MAR-2004
     Dates: start: 20040316, end: 20040316
  3. KYTRIL [Concomitant]
     Indication: PREMEDICATION
     Route: 042
  4. DEXAMETHASONE [Concomitant]
     Indication: PREMEDICATION
     Route: 042
  5. BENADRYL [Concomitant]
     Indication: PREMEDICATION
     Route: 042
  6. ZANTAC [Concomitant]
     Indication: PREMEDICATION
     Route: 042

REACTIONS (3)
  - CATHETER RELATED COMPLICATION [None]
  - NEUTROPHIL COUNT DECREASED [None]
  - PLATELET COUNT DECREASED [None]
